FAERS Safety Report 23531711 (Version 1)
Quarter: 2024Q1

REPORT INFORMATION
  Report Type: Spontaneous
  Country: FR (occurrence: FR)
  Receive Date: 20240216
  Receipt Date: 20240216
  Transmission Date: 20240409
  Serious: Yes (Other)
  Sender: FDA-Public Use
  Company Number: None

PATIENT
  Age: 15 Year
  Sex: Female
  Weight: 67.699 kg

DRUGS (21)
  1. ETOPOSIDE PHOSPHATE [Suspect]
     Active Substance: ETOPOSIDE PHOSPHATE
     Indication: Autologous haematopoietic stem cell transplant
     Route: 042
     Dates: start: 20231225, end: 20231225
  2. CYCLOSPORINE [Concomitant]
     Active Substance: CYCLOSPORINE
     Dates: start: 20231227, end: 20240103
  3. Ceftazimide [Concomitant]
     Dates: start: 20231230, end: 20240103
  4. DESOGESTREL [Concomitant]
     Active Substance: DESOGESTREL
     Dates: start: 20231222
  5. URSODIOL [Concomitant]
     Active Substance: URSODIOL
     Dosage: 250MG/5ML
     Dates: start: 20240101
  6. ACETAMINOPHEN [Concomitant]
     Active Substance: ACETAMINOPHEN
     Dosage: 500MG/50ML
     Dates: start: 20231229
  7. Titanoreine/lidocaine [Concomitant]
  8. LEUCOVORIN CALCIUM [Concomitant]
     Active Substance: LEUCOVORIN CALCIUM
     Dates: start: 20231230, end: 20240105
  9. METHOTREXATE [Concomitant]
     Active Substance: METHOTREXATE
     Dosage: IV
     Dates: start: 20231223
  10. METHOTREXATE [Concomitant]
     Active Substance: METHOTREXATE
     Dosage: IV
     Dates: start: 20231231, end: 20240103
  11. ACYCLOVIR [Concomitant]
     Active Substance: ACYCLOVIR
     Dosage: 500MMG PDR PERF
     Dates: start: 20231229
  12. ALIZAPRIDE [Concomitant]
     Active Substance: ALIZAPRIDE
     Dosage: 50MG/2ML SOL INJ
     Dates: start: 20231231
  13. THYMOGLOBULINE [Concomitant]
     Active Substance: LAPINE T-LYMPHOCYTE IMMUNE GLOBULIN
     Dosage: 2.5 MG/KG
     Dates: start: 20231225, end: 20231227
  14. NEFOPAM HYDROCHLORIDE [Concomitant]
     Active Substance: NEFOPAM HYDROCHLORIDE
     Dosage: 20 MG/2 ML
     Dates: start: 20231229
  15. ONDANSETRON [Concomitant]
     Active Substance: ONDANSETRON
     Dosage: 8MG/4ML SOL INJ AMP
     Dates: start: 20231223
  16. Caspofungin acetate ((mushroom/glarea lozoyensis)) [Concomitant]
     Dates: start: 20240102
  17. AMIKACIN [Concomitant]
     Active Substance: AMIKACIN
  18. PANTOPRAZOLE [Concomitant]
     Active Substance: PANTOPRAZOLE
     Dosage: 40 MG PDR INJ
     Dates: start: 20231229
  19. DEXCHLORPHENIRAMINE MALEATE [Concomitant]
     Active Substance: DEXCHLORPHENIRAMINE MALEATE
     Dosage: 5 MG/ML
     Dates: start: 20231225, end: 20231228
  20. VITAMIN A [Concomitant]
     Active Substance: VITAMIN A
     Dosage: OPHTHALMIC OINTMENT
     Dates: start: 20231228
  21. PIPERACILLIN AND TAZOBACTAM [Concomitant]
     Active Substance: PIPERACILLIN SODIUM\TAZOBACTAM SODIUM
     Dosage: 4G/0.5G
     Dates: start: 20231225, end: 20231228

REACTIONS (2)
  - Neuralgia [Not Recovered/Not Resolved]
  - Oedema peripheral [Not Recovered/Not Resolved]

NARRATIVE: CASE EVENT DATE: 20240102
